FAERS Safety Report 18960513 (Version 3)
Quarter: 2024Q1

REPORT INFORMATION
  Report Type: Spontaneous
  Country: FR (occurrence: FR)
  Receive Date: 20210302
  Receipt Date: 20240125
  Transmission Date: 20240410
  Serious: Yes (Other)
  Sender: FDA-Public Use
  Company Number: None

PATIENT
  Age: 71 Year
  Sex: Female
  Weight: 45 kg

DRUGS (16)
  1. RETACRIT [Suspect]
     Active Substance: EPOETIN ALFA-EPBX
     Indication: Anaemia
     Dosage: 1 DF, WEEKLY (30000 IU/0.75 ML)
     Route: 058
     Dates: start: 20201218
  2. CYTARABINE [Suspect]
     Active Substance: CYTARABINE
     Indication: B-cell lymphoma
     Dosage: 30 MG, SINGLE
     Route: 037
     Dates: start: 20201216, end: 20201216
  3. DOXORUBICIN HYDROCHLORIDE [Suspect]
     Active Substance: DOXORUBICIN HYDROCHLORIDE
     Indication: B-cell lymphoma
     Dosage: 70 MG, EVERY 3 WEEKS
     Route: 042
     Dates: start: 20201216
  4. METHYLPREDNISOLONE SODIUM SUCCINATE [Suspect]
     Active Substance: METHYLPREDNISOLONE SODIUM SUCCINATE
     Indication: B-cell lymphoma
     Dosage: 40 MG, SINGLE
     Route: 037
     Dates: start: 20201216, end: 20201216
  5. VINCRISTINE SULFATE [Suspect]
     Active Substance: VINCRISTINE SULFATE
     Indication: B-cell lymphoma
     Dosage: 2 MG, EVERY 3 WEEKS
     Route: 042
     Dates: start: 20201211, end: 20210515
  6. VALACYCLOVIR HYDROCHLORIDE [Suspect]
     Active Substance: VALACYCLOVIR HYDROCHLORIDE
     Indication: Antiviral prophylaxis
     Dosage: 1000 MG, 1X/DAY
     Route: 048
  7. RITUXIMAB [Suspect]
     Active Substance: RITUXIMAB
     Indication: Primary mediastinal large B-cell lymphoma
     Dosage: 500 MG, EVERY 3 WEEKS
     Route: 042
     Dates: start: 20201214, end: 20210515
  8. FILGRASTIM [Suspect]
     Active Substance: FILGRASTIM
     Indication: Product used for unknown indication
     Dosage: 5 DF, CYCLIC
     Route: 058
     Dates: start: 20201216
  9. ALLOPURINOL [Suspect]
     Active Substance: ALLOPURINOL
     Indication: Gout
     Dosage: 300 MG, 1X/DAY
     Route: 048
     Dates: start: 20201203
  10. METHOTREXATE [Suspect]
     Active Substance: METHOTREXATE
     Indication: B-cell lymphoma
     Dosage: 15 MG, SINGLE
     Route: 037
     Dates: start: 20201216, end: 20201216
  11. METHOTREXATE [Suspect]
     Active Substance: METHOTREXATE
     Indication: B-cell lymphoma
     Dosage: 2090 MG, EVERY 3 WEEKS
     Route: 042
     Dates: start: 20210106, end: 20210515
  12. AMITRIPTYLINE HYDROCHLORIDE [Suspect]
     Active Substance: AMITRIPTYLINE HYDROCHLORIDE
     Indication: Occipital neuralgia
     Dosage: 10 DROPS, 1X/DAY
     Route: 048
  13. PREDNISOLONE [Suspect]
     Active Substance: PREDNISOLONE
     Indication: B-cell lymphoma
     Dosage: 360 MG, CYCLIC EVERY 21 DAYS
     Route: 048
     Dates: start: 20201211, end: 20210515
  14. CYCLOPHOSPHAMIDE [Suspect]
     Active Substance: CYCLOPHOSPHAMIDE
     Indication: B-cell lymphoma
     Dosage: 1070 MG, CYCLIC EVERY 3 WEEKS
     Route: 042
     Dates: start: 20201211, end: 20210515
  15. ONDANSETRON [Suspect]
     Active Substance: ONDANSETRON
     Indication: Nausea
     Dosage: 4 DF, CYCLIC
     Route: 048
     Dates: start: 20201211
  16. ATOVAQUONE [Suspect]
     Active Substance: ATOVAQUONE
     Indication: Antifungal prophylaxis
     Dosage: 1500 MG, 1X/DAY (750 MG/5 ML)
     Route: 048

REACTIONS (1)
  - Cerebellar stroke [Not Recovered/Not Resolved]

NARRATIVE: CASE EVENT DATE: 20210128
